FAERS Safety Report 18837555 (Version 1)
Quarter: 2021Q1

REPORT INFORMATION
  Report Type: Spontaneous
  Country: US (occurrence: US)
  Receive Date: 20210203
  Receipt Date: 20210203
  Transmission Date: 20210419
  Serious: No
  Sender: FDA-Public Use
  Company Number: US-ALLERGAN-2026636US

PATIENT
  Sex: Female

DRUGS (12)
  1. BOTOX [Suspect]
     Active Substance: ONABOTULINUMTOXINA
     Indication: PRODUCT USED FOR UNKNOWN INDICATION
     Dosage: UNK, SINGLE
  2. PREGABALIN. [Concomitant]
     Active Substance: PREGABALIN
  3. TECFIDERA [Suspect]
     Active Substance: DIMETHYL FUMARATE
     Indication: MULTIPLE SCLEROSIS
     Dosage: 240 MG, BID
     Route: 048
     Dates: start: 20190406
  4. DULOXETINE. [Concomitant]
     Active Substance: DULOXETINE
  5. MELOXICAM. [Concomitant]
     Active Substance: MELOXICAM
  6. DALFAMPRIDINE. [Suspect]
     Active Substance: DALFAMPRIDINE
     Indication: PRODUCT USED FOR UNKNOWN INDICATION
  7. HYDROCODONE BITARTRATE AND ACETAMINOPHEN [Concomitant]
     Active Substance: ACETAMINOPHEN\HYDROCODONE BITARTRATE
  8. TOLTERODINE [Concomitant]
     Active Substance: TOLTERODINE
  9. VITAMIN D [Concomitant]
     Active Substance: VITAMIN D NOS
  10. IBUPROFEN. [Concomitant]
     Active Substance: IBUPROFEN
  11. BACLOFEN. [Concomitant]
     Active Substance: BACLOFEN
  12. CYANOCOBALAM [Concomitant]
     Active Substance: CYANOCOBALAMIN

REACTIONS (1)
  - Bladder disorder [Not Recovered/Not Resolved]
